FAERS Safety Report 6373334-1 (Version None)
Quarter: 2009Q3

REPORT INFORMATION
  Report Type: 
  Country: None (occurrence: None)
  Receive Date: 20090924
  Receipt Date: 20090409
  Transmission Date: 20100115
  Serious: No
  Sender: FDA-Public Use
  Company Number: US-ASTRAZENECA-2009UW08988

PATIENT
  Age: 26 Year
  Sex: Female

DRUGS (1)
  1. SEROQUEL XR [Suspect]
     Indication: DEPRESSION
     Route: 048
     Dates: start: 20090401

REACTIONS (5)
  - DIARRHOEA [None]
  - DIZZINESS [None]
  - IMPAIRED SELF-CARE [None]
  - MENTAL STATUS CHANGES [None]
  - PANIC ATTACK [None]
